FAERS Safety Report 8423719 (Version 4)
Quarter: 2014Q1

REPORT INFORMATION
  Report Type: Spontaneous
  Country: US (occurrence: US)
  Receive Date: 20120224
  Receipt Date: 20140116
  Transmission Date: 20141002
  Serious: No
  Sender: FDA-Public Use
  Company Number: US-PFIZER INC-2012046101

PATIENT
  Age: 50 Year
  Sex: Female
  Weight: 56.69 kg

DRUGS (2)
  1. FLECTOR [Suspect]
     Indication: BACK PAIN
     Dosage: UNK
     Dates: start: 201110, end: 20120214
  2. FLECTOR [Suspect]
     Dosage: UNK, AS NEEDED
     Route: 062

REACTIONS (4)
  - Drug ineffective [Unknown]
  - Rash pruritic [Not Recovered/Not Resolved]
  - Purpura [Recovering/Resolving]
  - Pain [Unknown]
